FAERS Safety Report 5159231-8 (Version None)
Quarter: 2006Q4

REPORT INFORMATION
  Report Type: 
  Country: None (occurrence: None)
  Receive Date: 20061128
  Receipt Date: 20061120
  Transmission Date: 20070319
  Serious: Yes (Hospitalization)
  Sender: FDA-Public Use
  Company Number: GB-GILEAD-2006-0010685

PATIENT
  Sex: Male

DRUGS (3)
  1. TRUVADA [Suspect]
  2. REYATAZ [Suspect]
  3. RITONAVIR [Suspect]

REACTIONS (2)
  - RENAL COLIC [None]
  - RENAL PAIN [None]
